FAERS Safety Report 19019831 (Version 1)
Quarter: 2021Q1

REPORT INFORMATION
  Report Type: Spontaneous
  Country: US (occurrence: US)
  Receive Date: 20210317
  Receipt Date: 20210317
  Transmission Date: 20210420
  Serious: Yes (Hospitalization)
  Sender: FDA-Public Use
  Company Number: None

PATIENT
  Age: 47 Year
  Sex: Female
  Weight: 56.7 kg

DRUGS (1)
  1. FERRLECIT [Suspect]
     Active Substance: SODIUM FERRIC GLUCONATE COMPLEX
     Indication: IRON DEFICIENCY ANAEMIA
     Dosage: ?          OTHER FREQUENCY:ONCE.  PT AR;?
     Route: 042
     Dates: start: 20210311

REACTIONS (9)
  - Peripheral swelling [None]
  - Nausea [None]
  - Abdominal pain [None]
  - Hypersensitivity [None]
  - Vomiting [None]
  - Infusion related reaction [None]
  - Throat tightness [None]
  - Lip swelling [None]
  - Hyperhidrosis [None]

NARRATIVE: CASE EVENT DATE: 20210311
